FAERS Safety Report 8085576-8 (Version None)
Quarter: 2012Q1

REPORT INFORMATION
  Report Type: 
  Country: None (occurrence: None)
  Receive Date: 20120128
  Receipt Date: 20110602
  Transmission Date: 20120608
  Serious: No
  Sender: FDA-Public Use
  Company Number: US-ABBOTT-11P-163-0715788-00

PATIENT
  Age: 53 Year
  Sex: Female

DRUGS (4)
  1. VASOTEC [Concomitant]
     Indication: BLOOD PRESSURE
  2. HUMIRA [Suspect]
  3. HUMIRA [Suspect]
     Indication: PSORIASIS
     Dosage: LOADING DOSE
     Dates: start: 20110319, end: 20110319
  4. OTHER BLOOD PRESSURE MEDICATIONS [Concomitant]
     Indication: PRODUCT USED FOR UNKNOWN INDICATION

REACTIONS (7)
  - PSORIASIS [None]
  - PSORIATIC ARTHROPATHY [None]
  - SKIN EXFOLIATION [None]
  - ARTHRALGIA [None]
  - DRUG INEFFECTIVE [None]
  - DRY SKIN [None]
  - PAIN IN EXTREMITY [None]
